FAERS Safety Report 7108489-4 (Version None)
Quarter: 2010Q4

REPORT INFORMATION
  Report Type: 
  Country: None (occurrence: None)
  Receive Date: 20101117
  Receipt Date: 20101108
  Transmission Date: 20110411
  Serious: Yes (Hospitalization)
  Sender: FDA-Public Use
  Company Number: US-ROCHE-692183

PATIENT
  Sex: Male
  Weight: 76 kg

DRUGS (17)
  1. MYCOPHENOLATE MOFETIL [Suspect]
     Dosage: TEMPORARILY STOPPED
     Route: 065
     Dates: start: 20080523, end: 20100224
  2. MYCOPHENOLATE MOFETIL [Suspect]
     Route: 065
     Dates: start: 20100225, end: 20100305
  3. MYCOPHENOLATE MOFETIL [Suspect]
     Route: 065
     Dates: start: 20100306, end: 20100423
  4. PREDNISONE [Suspect]
     Route: 065
     Dates: start: 20080617, end: 20100406
  5. PREDNISONE [Suspect]
     Route: 065
     Dates: start: 20100409, end: 20100423
  6. CP-690550 [Suspect]
     Route: 048
     Dates: start: 20080523
  7. ACETYLSALICYLIC ACID SRT [Concomitant]
     Dates: start: 20090430, end: 20100423
  8. LIPITOR [Concomitant]
     Dates: start: 20080909, end: 20100423
  9. PROTONIX [Concomitant]
     Dates: start: 20080524, end: 20100423
  10. TAMSULOSIN HYDROCHLORIDE [Concomitant]
     Dates: start: 20080527, end: 20100423
  11. METOPROLOL [Concomitant]
     Dosage: START DATE: 2010
     Dates: end: 20100423
  12. LASIX [Concomitant]
     Dates: start: 20081017, end: 20100225
  13. VALSARTAN [Concomitant]
     Dates: start: 20081118, end: 20100225
  14. HUMALOG [Concomitant]
     Dates: start: 20080525, end: 20100423
  15. LEVAQUIN [Concomitant]
     Dates: start: 20100305, end: 20100329
  16. PLAVIX [Concomitant]
     Dates: start: 20100305, end: 20100423
  17. MUCINEX [Concomitant]
     Dates: start: 20100224, end: 20100423

REACTIONS (8)
  - CELLULITIS [None]
  - DIABETIC KETOACIDOSIS [None]
  - LOCALISED INFECTION [None]
  - OSTEOMYELITIS [None]
  - PERIPHERAL VASCULAR DISORDER [None]
  - STAPHYLOCOCCAL INFECTION [None]
  - STAPHYLOCOCCAL SEPSIS [None]
  - TOE AMPUTATION [None]
